FAERS Safety Report 23046800 (Version 5)
Quarter: 2024Q1

REPORT INFORMATION
  Report Type: Report from Study
  Country: FR (occurrence: FR)
  Receive Date: 20231009
  Receipt Date: 20240104
  Transmission Date: 20240410
  Serious: Yes (Life-Threatening, Hospitalization, Other)
  Sender: FDA-Public Use
  Company Number: FR-BAXTER-2023BAX031532

PATIENT
  Age: 76 Year
  Sex: Male
  Weight: 76 kg

DRUGS (18)
  1. VINCRISTINE SULFATE [Suspect]
     Active Substance: VINCRISTINE SULFATE
     Indication: Diffuse large B-cell lymphoma
     Dosage: 2 MG, EVERY 3 WEEKS
     Route: 042
     Dates: start: 20230905
  2. VINCRISTINE SULFATE [Suspect]
     Active Substance: VINCRISTINE SULFATE
     Dosage: 2 MG, EVERY 3 WEEKS
     Route: 042
     Dates: start: 20230906
  3. RITUXIMAB [Suspect]
     Active Substance: RITUXIMAB
     Indication: Diffuse large B-cell lymphoma
     Dosage: 705 MG, EVERY 3 WEEKS
     Route: 042
     Dates: start: 20230905
  4. DOXORUBICIN HYDROCHLORIDE [Suspect]
     Active Substance: DOXORUBICIN HYDROCHLORIDE
     Indication: Diffuse large B-cell lymphoma
     Dosage: 94 MG, EVERY 3 WEEKS
     Route: 042
     Dates: start: 20230905
  5. DOXORUBICIN HYDROCHLORIDE [Suspect]
     Active Substance: DOXORUBICIN HYDROCHLORIDE
     Dosage: 94 MG, EVERY 3 WEEKS
     Route: 042
     Dates: start: 20230906
  6. PREDNISONE [Suspect]
     Active Substance: PREDNISONE
     Indication: Diffuse large B-cell lymphoma
     Dosage: C1-6, D1-5, EVERY 1 DAYS
     Route: 048
     Dates: start: 20230905
  7. CYCLOPHOSPHAMIDE [Suspect]
     Active Substance: CYCLOPHOSPHAMIDE
     Indication: Diffuse large B-cell lymphoma
     Dosage: 1410 MG, EVERY 3 WEEKS
     Route: 042
     Dates: start: 20230905
  8. CYCLOPHOSPHAMIDE [Suspect]
     Active Substance: CYCLOPHOSPHAMIDE
     Dosage: 1410 MG, EVERY 3 WEEKS
     Route: 042
     Dates: start: 20230906
  9. LYSINE ACETYLSALICYLATE [Concomitant]
     Active Substance: ASPIRIN DL-LYSINE
     Indication: Thrombosis prophylaxis
     Dosage: 75 MG
     Dates: start: 2009
  10. BISOPROLOL FUMARATE [Concomitant]
     Active Substance: BISOPROLOL FUMARATE
     Indication: Hypertension
     Dosage: 2.5 MG, 7/WEEKS
     Dates: start: 200501
  11. GLIMEPIRIDE [Concomitant]
     Active Substance: GLIMEPIRIDE
     Indication: Type 2 diabetes mellitus
     Dosage: UNK
     Dates: start: 200501
  12. APREPITANT [Concomitant]
     Active Substance: APREPITANT
     Indication: Prophylaxis of nausea and vomiting
     Dosage: 180 MG IN TOTAL
     Dates: start: 20230905, end: 20230907
  13. RAMIPRIL [Concomitant]
     Active Substance: RAMIPRIL
     Indication: Hypertension
     Dosage: 5 MG, 7/WEEKS
     Dates: start: 200501
  14. AMLODIPINE [Concomitant]
     Active Substance: AMLODIPINE BESYLATE
     Indication: Hypertension
     Dosage: 5 MG, 7/WEEKS
     Dates: start: 200501
  15. SULFAMETHOXAZOLE [Concomitant]
     Active Substance: SULFAMETHOXAZOLE
     Indication: Infection prophylaxis
     Dosage: 3/WEEKS
     Dates: start: 20230905
  16. ACYCLOVIR [Concomitant]
     Active Substance: ACYCLOVIR
     Indication: Infection prophylaxis
     Dosage: 800 MG, 7/WEEKS
     Dates: start: 20230919
  17. ATORVASTATIN [Concomitant]
     Active Substance: ATORVASTATIN
     Indication: Type 2 diabetes mellitus
     Dosage: 40 MG, 7/WEEKS
     Dates: start: 200501
  18. FOLIC ACID [Concomitant]
     Active Substance: FOLIC ACID
     Indication: Bone marrow failure
     Dosage: 25 MG EVERY 1 WEEK
     Dates: start: 20230919

REACTIONS (5)
  - Pneumonia aspiration [Recovered/Resolved]
  - Pneumonia [Not Recovered/Not Resolved]
  - Infusion related reaction [Recovered/Resolved]
  - Proteus infection [Recovered/Resolved]
  - Stenotrophomonas infection [Recovered/Resolved]

NARRATIVE: CASE EVENT DATE: 20230905
